FAERS Safety Report 15416966 (Version 1)
Quarter: 2018Q3

REPORT INFORMATION
  Report Type: Report from Study
  Country: DE (occurrence: DE)
  Receive Date: 20180924
  Receipt Date: 20180924
  Transmission Date: 20181010
  Serious: Yes (Congenital Anomaly, Other)
  Sender: FDA-Public Use
  Company Number: DE-AUROBINDO-AUR-APL-2018-047181

PATIENT
  Sex: Male
  Weight: 1.25 kg

DRUGS (1)
  1. VALSARTAN. [Suspect]
     Active Substance: VALSARTAN
     Indication: PRODUCT USED FOR UNKNOWN INDICATION
     Route: 064

REACTIONS (8)
  - Neonatal respiratory distress [Unknown]
  - Neonatal pneumonia [Unknown]
  - Patent ductus arteriosus [Unknown]
  - Congenital umbilical hernia [Unknown]
  - Eyelid ptosis congenital [Unknown]
  - Bradycardia neonatal [Unknown]
  - Infantile apnoea [Unknown]
  - Foetal exposure during pregnancy [Unknown]
